FAERS Safety Report 6404755-6 (Version None)
Quarter: 2009Q4

REPORT INFORMATION
  Report Type: 
  Country: None (occurrence: None)
  Receive Date: 20091016
  Receipt Date: 20091006
  Transmission Date: 20100525
  Serious: Yes (Hospitalization, Other)
  Sender: FDA-Public Use
  Company Number: US-ROCHE-641596

PATIENT
  Sex: Female

DRUGS (2)
  1. PEGASYS [Suspect]
     Dosage: PREFILLED SYRINGE
     Route: 065
     Dates: start: 20081103, end: 20090901
  2. COPEGUS [Suspect]
     Dosage: IN DIVIDED DOSES
     Route: 065
     Dates: start: 20081103, end: 20090901

REACTIONS (8)
  - ABASIA [None]
  - ASTHENIA [None]
  - BLOOD DISORDER [None]
  - DIZZINESS [None]
  - EAR INFECTION [None]
  - HEADACHE [None]
  - ROAD TRAFFIC ACCIDENT [None]
  - VISION BLURRED [None]
